FAERS Safety Report 4647386-0 (Version None)
Quarter: 2005Q2

REPORT INFORMATION
  Report Type: 
  Country: None (occurrence: None)
  Receive Date: 20050426
  Receipt Date: 20050412
  Transmission Date: 20051028
  Serious: No
  Sender: FDA-Public Use
  Company Number: MK200504-0214-1

PATIENT
  Age: 55 Year
  Sex: Male

DRUGS (5)
  1. HEXABRIX [Suspect]
     Indication: ARTHROGRAM
     Dosage: SINGLE USE
     Dates: start: 20040630, end: 20040630
  2. ALTIM (CORTIVASOL) [Concomitant]
  3. XYLOCAINE [Concomitant]
  4. PHENOBARBITAL TAB [Concomitant]
  5. COZAAR [Concomitant]

REACTIONS (1)
  - ANAPHYLACTIC REACTION [None]
